FAERS Safety Report 9377872 (Version 1)
Quarter: 2013Q2

REPORT INFORMATION
  Report Type: Spontaneous
  Country: US (occurrence: None)
  Receive Date: 20130625
  Receipt Date: 20130625
  Transmission Date: 20140414
  Serious: Yes (Life-Threatening, Hospitalization, Other)
  Sender: FDA-Public Use
  Company Number: 2013P1008524

PATIENT
  Age: 16 Year
  Sex: Female

DRUGS (3)
  1. BUPROPION [Suspect]
  2. ARIPIPRAZOLE [Suspect]
  3. ACTIVATED CHARCOAL [Suspect]

REACTIONS (11)
  - Unresponsive to stimuli [None]
  - Convulsion [None]
  - Acute respiratory distress syndrome [None]
  - Hypotension [None]
  - Serotonin syndrome [None]
  - Bezoar [None]
  - Toxicity to various agents [None]
  - Body temperature increased [None]
  - Extrapyramidal disorder [None]
  - Hyperreflexia [None]
  - Hypoperfusion [None]
